FAERS Safety Report 9758903 (Version 1)
Quarter: 2013Q4

REPORT INFORMATION
  Report Type: Spontaneous
  Country: US (occurrence: None)
  Receive Date: 20131216
  Receipt Date: 20131216
  Transmission Date: 20140711
  Serious: Yes (Other)
  Sender: FDA-Public Use
  Company Number: 163-POMAL-13040267(0)

PATIENT
  Age: 56 Year
  Sex: Male

DRUGS (9)
  1. POMALYST [Suspect]
     Indication: PLASMA CELL MYELOMA
     Dosage: NOT PROVIDED, PO? ? ?
  2. ADVIL (IBUPROFEN) (UNKNOWN) [Concomitant]
  3. AMBIEN (ZOLPIDEM TARTRATE) (UNKNOWN) [Concomitant]
  4. AREDIA (PAMIDRONATE DISODIUM) (UNKNOWN) [Concomitant]
  5. DEXAMETHASONE (DEXAMETHASONE) (UNKNOWN) [Concomitant]
  6. FENTANYL (FENTANYL) (UNKNOWN) (FENTANYL) [Concomitant]
  7. GABAPENTIN (GABAPENTIN) (UNKNOWN) (GABAPENTIN) [Concomitant]
  8. HYDROMORPHONE HCL (HYDROMORPHONE HYDROCHLORIDE) (UNKNOWN) [Concomitant]
  9. MECLIZINE HCL (MECLOZINE HYDROCHLORIDE) (UNKNOWN) [Concomitant]

REACTIONS (4)
  - Flank pain [None]
  - Night sweats [None]
  - Chills [None]
  - Dizziness [None]
